FAERS Safety Report 8269064-1 (Version None)
Quarter: 2012Q2

REPORT INFORMATION
  Report Type: 
  Country: None (occurrence: None)
  Receive Date: 20120409
  Receipt Date: 20120403
  Transmission Date: 20120825
  Serious: Yes (Other)
  Sender: FDA-Public Use
  Company Number: US-PFIZER INC-2012085147

PATIENT
  Sex: Male

DRUGS (7)
  1. LISINOPRIL AND HYDROCHLOROTHIAZIDE [Concomitant]
     Dosage: 12.5 UNK, UNK
  2. MULTI-VITAMINS [Concomitant]
  3. OXYCODONE [Concomitant]
     Dosage: 30 MG, UNK
  4. XANAX [Concomitant]
     Dosage: 1 MG, UNK
  5. ACETYLSALICYLIC ACID [Concomitant]
     Dosage: 81.5 UNK, UNK
  6. VERAPAMIL [Concomitant]
     Dosage: 240 MG, UNK
  7. VIAGRA [Suspect]
     Dosage: 100 MG, UNK

REACTIONS (1)
  - PROSTATE CANCER [None]
